FAERS Safety Report 5315939-2 (Version None)
Quarter: 2007Q2

REPORT INFORMATION
  Report Type: 
  Country: None (occurrence: None)
  Receive Date: 20070503
  Receipt Date: 20070419
  Transmission Date: 20071010
  Serious: Yes (Other)
  Sender: FDA-Public Use
  Company Number: JP-ROCHE-436172

PATIENT
  Age: 12 Year
  Sex: Male

DRUGS (2)
  1. TAMIFLU [Suspect]
     Route: 048
     Dates: start: 20060201
  2. CALONAL [Concomitant]
     Dosage: ONCE DAILY, AS NEEDED.
     Route: 048
     Dates: start: 20060201, end: 20060201

REACTIONS (1)
  - ABNORMAL BEHAVIOUR [None]
